FAERS Safety Report 9023282 (Version 1)
Quarter: 2013Q1

REPORT INFORMATION
  Report Type: Spontaneous
  Country: US (occurrence: US)
  Receive Date: 20130120
  Receipt Date: 20130120
  Transmission Date: 20140127
  Serious: No
  Sender: FDA-Public Use
  Company Number: US-ALLERGAN-1213859US

PATIENT
  Sex: Female

DRUGS (2)
  1. BOTOX COSMETIC [Suspect]
     Indication: SKIN WRINKLING
     Dosage: 25 UNITS, SINGLE
     Route: 030
     Dates: start: 20121005, end: 20121005
  2. LAMICTAL [Concomitant]
     Indication: BIPOLAR DISORDER
     Dosage: UNK UNK, QD
     Route: 048

REACTIONS (5)
  - Hyperventilation [Unknown]
  - Headache [Unknown]
  - Nausea [Unknown]
  - Anxiety [Unknown]
  - Incorrect dose administered [Unknown]
